FAERS Safety Report 7547997-9 (Version None)
Quarter: 2011Q2

REPORT INFORMATION
  Report Type: 
  Country: None (occurrence: None)
  Receive Date: 20110608
  Receipt Date: 20110516
  Transmission Date: 20111010
  Serious: Yes (Other)
  Sender: FDA-Public Use
  Company Number: FR-ACCORD-009410

PATIENT
  Age: 70 Year
  Sex: Female

DRUGS (3)
  1. MYCOPHENOLATE MOFETIL [Suspect]
     Indication: IMMUNOSUPPRESSION
     Dosage: 1.50 G-1.0 DAYS
  2. TACROLIMUS [Suspect]
     Indication: IMMUNOSUPPRESSION
     Dosage: 1.50 G - 1.0 DAYS
  3. PREDNISONE [Suspect]
     Indication: IMMUNOSUPPRESSION
     Dosage: 5.00 MG-1.0 DAYS

REACTIONS (5)
  - CYTOMEGALOVIRUS INFECTION [None]
  - CEREBELLAR INFARCTION [None]
  - CEREBRAL TOXOPLASMOSIS [None]
  - ANGIOCENTRIC LYMPHOMA [None]
  - PNEUMONIA CYTOMEGALOVIRAL [None]
